FAERS Safety Report 18157535 (Version 1)
Quarter: 2020Q3

REPORT INFORMATION
  Report Type: Spontaneous
  Country: ES (occurrence: ES)
  Receive Date: 20200817
  Receipt Date: 20200817
  Transmission Date: 20201103
  Serious: Yes (Hospitalization)
  Sender: FDA-Public Use
  Company Number: ES-TEVA-2020-ES-1814038

PATIENT
  Age: 91 Year
  Sex: Male

DRUGS (1)
  1. BISOPROLOL (2328A) [Suspect]
     Active Substance: BISOPROLOL
     Dates: start: 20150205, end: 2020

REACTIONS (1)
  - Bradyarrhythmia [Recovered/Resolved]

NARRATIVE: CASE EVENT DATE: 20200424
